FAERS Safety Report 24176885 (Version 1)
Quarter: 2024Q3

REPORT INFORMATION
  Report Type: Report from Study
  Country: CA (occurrence: CA)
  Receive Date: 20240806
  Receipt Date: 20240806
  Transmission Date: 20241017
  Serious: Yes (Other)
  Sender: Alvotech
  Company Number: CA-JAMP PHARMA CORPORATION-2023-JAM-CA-00279

PATIENT
  Age: 41 Year
  Sex: Female

DRUGS (5)
  1. SIMLANDI [Suspect]
     Active Substance: ADALIMUMAB-RYVK
     Indication: Crohn^s disease
     Dosage: 40 MILLIGRAM, EVERY WEEK
     Route: 058
  2. SIMLANDI [Suspect]
     Active Substance: ADALIMUMAB-RYVK
     Indication: Crohn^s disease
     Dosage: REINDUCTION DOSE 160 MG AT WEEK 0
     Route: 058
     Dates: start: 20230121
  3. SIMLANDI [Suspect]
     Active Substance: ADALIMUMAB-RYVK
     Indication: Crohn^s disease
     Dosage: 80 MILLIGRAM, WEEK 2
     Route: 058
     Dates: end: 20230218
  4. SIMLANDI [Suspect]
     Active Substance: ADALIMUMAB-RYVK
     Indication: Crohn^s disease
     Dosage: 40 MILLIGRAM, EVERY 2 WEEKS, LAST DOSE PRIOR EVENTS OF STENOSIS, FAECES SOFT, DIARHHEA, SORE STOMACH
     Route: 058
     Dates: start: 20231223, end: 20231223
  5. SIMLANDI [Suspect]
     Active Substance: ADALIMUMAB-RYVK
     Indication: Crohn^s disease
     Dosage: 40 MILLIGRAM, EVERY 2 WEEKS
     Route: 058
     Dates: start: 20230124

REACTIONS (13)
  - Crohn^s disease [Unknown]
  - Stenosis [Unknown]
  - Faeces soft [Unknown]
  - Diarrhoea [Unknown]
  - Abdominal pain upper [Unknown]
  - Injection site warmth [Unknown]
  - Injection site erythema [Recovered/Resolved]
  - Injection site mass [Recovered/Resolved]
  - Injection site pruritus [Unknown]
  - Injection site reaction [Unknown]
  - Injection site swelling [Unknown]
  - Insomnia [Unknown]
  - Depression [Unknown]

NARRATIVE: CASE EVENT DATE: 20230121
